FAERS Safety Report 13551373 (Version 1)
Quarter: 2017Q2

REPORT INFORMATION
  Report Type: Spontaneous
  Country: None (occurrence: CA)
  Receive Date: 20170516
  Receipt Date: 20170516
  Transmission Date: 20170830
  Serious: Yes (Life-Threatening)
  Sender: FDA-Public Use
  Company Number: CA-VISTAPHARM, INC.-VER201705-000032

PATIENT
  Age: 71 Year
  Sex: Female

DRUGS (11)
  1. ROSUVASTATIN. [Suspect]
     Active Substance: ROSUVASTATIN
  2. LEVOTHYROXINE. [Suspect]
     Active Substance: LEVOTHYROXINE
  3. DEXTROSE. [Suspect]
     Active Substance: DEXTROSE
  4. PROPRANOLOL [Suspect]
     Active Substance: PROPRANOLOL HYDROCHLORIDE
  5. CITALOPRAM [Suspect]
     Active Substance: CITALOPRAM HYDROBROMIDE
  6. BUPROPION. [Suspect]
     Active Substance: BUPROPION
  7. FESOTERODINE [Suspect]
     Active Substance: FESOTERODINE
  8. PANTOPRAZOLE [Suspect]
     Active Substance: PANTOPRAZOLE
  9. OXYCODONE [Suspect]
     Active Substance: OXYCODONE
  10. AMITRIPTYLINE [Suspect]
     Active Substance: AMITRIPTYLINE
  11. LORAZEPAM. [Suspect]
     Active Substance: LORAZEPAM

REACTIONS (5)
  - Pulseless electrical activity [Recovered/Resolved]
  - Loss of consciousness [Unknown]
  - Hypotension [Recovering/Resolving]
  - Overdose [Recovering/Resolving]
  - Brain injury [Unknown]
